FAERS Safety Report 18017171 (Version 1)
Quarter: 2020Q3

REPORT INFORMATION
  Report Type: Spontaneous
  Country: US (occurrence: US)
  Receive Date: 20200714
  Receipt Date: 20200714
  Transmission Date: 20201103
  Serious: No
  Sender: FDA-Public Use
  Company Number: US-AMGEN-USASP2020110359

PATIENT
  Age: 43 Year
  Sex: Female

DRUGS (1)
  1. PANITUMUMAB [Suspect]
     Active Substance: PANITUMUMAB
     Indication: LUNG NEOPLASM MALIGNANT
     Dosage: UNK
     Route: 065

REACTIONS (2)
  - Drug hypersensitivity [Unknown]
  - Off label use [Unknown]
